FAERS Safety Report 7228444-3 (Version None)
Quarter: 2011Q1

REPORT INFORMATION
  Report Type: 
  Country: None (occurrence: None)
  Receive Date: 20110114
  Receipt Date: 20110107
  Transmission Date: 20110831
  Serious: Yes (Other)
  Sender: FDA-Public Use
  Company Number: FR-MERCK-1101FRA00023

PATIENT
  Age: 72 Year
  Sex: Male

DRUGS (2)
  1. ZOCOR [Suspect]
     Route: 048
     Dates: start: 20100901
  2. ZOCOR [Suspect]
     Route: 048
     Dates: start: 19910101, end: 20100901

REACTIONS (1)
  - PULMONARY FIBROSIS [None]
